FAERS Safety Report 4372825-2 (Version None)
Quarter: 2004Q2

REPORT INFORMATION
  Report Type: 
  Country: None (occurrence: None)
  Receive Date: 20040603
  Receipt Date: 20040525
  Transmission Date: 20050107
  Serious: Yes (Hospitalization, Other)
  Sender: FDA-Public Use
  Company Number: 2004215719LB

PATIENT
  Age: 24 Year
  Sex: Female

DRUGS (7)
  1. DELTASONE [Suspect]
     Indication: THROMBOCYTOPENIA
     Dosage: 2 MG/KG, QD
  2. GAMMAGLOBULIN (IMMUNOGLOBULIN HUMAN NORMAL) SOLUTION, STERILE [Suspect]
     Indication: THROMBOCYTOPENIA
     Dosage: IV
     Route: 042
  3. SOLU-MEDROL [Suspect]
     Indication: THROMBOTIC THROMBOCYTOPENIC PURPURA
     Dosage: SEE IMAGE
     Route: 042
  4. ASPIRIN [Suspect]
     Indication: THROMBOTIC THROMBOCYTOPENIC PURPURA
  5. LMW HEPARIN (HEPARIN) [Suspect]
     Indication: THROMBOTIC THROMBOCYTOPENIC PURPURA
  6. RED BLOOD CELLS [Concomitant]
  7. PLATELET HUMAN BLOOD (PLATELET HUMAN BLOOD) [Concomitant]

REACTIONS (10)
  - ANTEPARTUM HAEMORRHAGE [None]
  - CAESAREAN SECTION [None]
  - DRUG EXPOSURE DURING PREGNANCY [None]
  - DRUG INEFFECTIVE [None]
  - INFARCTION [None]
  - INTRA-UTERINE DEATH [None]
  - OCULAR ICTERUS [None]
  - PLACENTAL DISORDER [None]
  - PREMATURE BABY [None]
  - TWIN PREGNANCY [None]
